FAERS Safety Report 6007899-6 (Version None)
Quarter: 2008Q4

REPORT INFORMATION
  Report Type: 
  Country: None (occurrence: None)
  Receive Date: 20081217
  Receipt Date: 20080710
  Transmission Date: 20090506
  Serious: No
  Sender: FDA-Public Use
  Company Number: US-ASTRAZENECA-2008UW13878

PATIENT
  Age: 59 Year
  Sex: Female
  Weight: 47.6 kg

DRUGS (5)
  1. CRESTOR [Suspect]
     Indication: BLOOD CHOLESTEROL INCREASED
     Route: 048
     Dates: start: 20080501, end: 20080101
  2. CRESTOR [Suspect]
     Route: 048
     Dates: start: 20080708
  3. OMEPRAZOLE [Concomitant]
  4. TRAZODONE HCL [Concomitant]
  5. ARTHROTEC [Concomitant]

REACTIONS (2)
  - BLOOD CHOLESTEROL INCREASED [None]
  - RESTLESS LEGS SYNDROME [None]
